FAERS Safety Report 5868084-1 (Version None)
Quarter: 2008Q3

REPORT INFORMATION
  Report Type: 
  Country: None (occurrence: None)
  Receive Date: 20080902
  Receipt Date: 20080404
  Transmission Date: 20090109
  Serious: No
  Sender: FDA-Public Use
  Company Number: US-ABBOTT-08P-163-0445808-00

PATIENT
  Sex: Male
  Weight: 83.536 kg

DRUGS (6)
  1. DEPAKOTE ER [Suspect]
     Indication: ANGER
     Route: 048
     Dates: start: 20071001
  2. DEPAKOTE ER [Suspect]
     Route: 048
     Dates: start: 20061001, end: 20070901
  3. OLMESARTAN MEDOXOMIL [Concomitant]
     Indication: HYPERTENSION
     Route: 048
  4. ESCITALOPRAM OXALATE [Concomitant]
     Indication: DEPRESSION
     Route: 048
  5. ALFUZOSIN HCL [Concomitant]
     Indication: PROSTATIC DISORDER
     Route: 048
  6. FEXOFENADINE [Concomitant]
     Indication: HYPERSENSITIVITY
     Route: 048

REACTIONS (1)
  - AGGRESSION [None]
